FAERS Safety Report 8847731 (Version 1)
Quarter: 2012Q4

REPORT INFORMATION
  Report Type: 
  Country: JP (occurrence: JP)
  Receive Date: 20121018
  Receipt Date: 20121018
  Transmission Date: 20130627
  Serious: Yes (Other)
  Sender: FDA-Public Use
  Company Number: JP-PFIZER INC-2012255714

PATIENT
  Age: 67 Year
  Sex: Female

DRUGS (2)
  1. ZITHROMAC [Suspect]
     Indication: PYREXIA
     Dosage: UNK
     Route: 048
  2. THIURAGYL [Concomitant]
     Indication: BASEDOW^S DISEASE
     Dosage: UNK
     Route: 048

REACTIONS (1)
  - Hyperthyroidism [Unknown]
